FAERS Safety Report 4628407-8 (Version None)
Quarter: 2005Q2

REPORT INFORMATION
  Report Type: 
  Country: None (occurrence: None)
  Receive Date: 20050401
  Receipt Date: 20050324
  Transmission Date: 20051028
  Serious: Yes (Hospitalization)
  Sender: FDA-Public Use
  Company Number: 2005UW04163

PATIENT
  Age: 51 Year
  Sex: Male
  Weight: 100 kg

DRUGS (6)
  1. IRESSA [Suspect]
     Indication: COLON CANCER
     Dosage: 250 MG QD PO
     Route: 048
     Dates: start: 20050302
  2. OXALIPLATIN [Suspect]
     Indication: COLON CANCER
     Dosage: 296 MG Q3WK IV
     Route: 042
     Dates: start: 20050307
  3. CAPECITABINE [Suspect]
     Indication: COLON CANCER
     Dosage: 1800 MG BID PO
     Route: 048
  4. DECADRON [Concomitant]
  5. TOPROL-XL [Concomitant]
  6. WARFARIN SODIUM [Concomitant]

REACTIONS (8)
  - COLON CANCER METASTATIC [None]
  - DEHYDRATION [None]
  - DIARRHOEA [None]
  - ILEUS [None]
  - MALIGNANT NEOPLASM PROGRESSION [None]
  - NAUSEA [None]
  - POST PROCEDURAL COMPLICATION [None]
  - SMALL INTESTINAL OBSTRUCTION [None]
